FAERS Safety Report 16859648 (Version 1)
Quarter: 2019Q3

REPORT INFORMATION
  Report Type: Spontaneous
  Country: IT (occurrence: IT)
  Receive Date: 20190927
  Receipt Date: 20190927
  Transmission Date: 20191005
  Serious: Yes (Other)
  Sender: FDA-Public Use
  Company Number: IT-TEVA-2019-IT-1112663

PATIENT
  Age: 63 Year
  Sex: Male
  Weight: 108 kg

DRUGS (10)
  1. LEVOLEUCOVORIN. [Concomitant]
     Active Substance: LEVOLEUCOVORIN
     Indication: ADENOCARCINOMA OF COLON
     Route: 042
     Dates: start: 20190125, end: 20190719
  2. LERCAPREL [Concomitant]
     Active Substance: ENALAPRIL MALEATE\LERCANIDIPINE HYDROCHLORIDE
  3. SINVACOR [Concomitant]
     Active Substance: SIMVASTATIN
  4. AVASTIN [Suspect]
     Active Substance: BEVACIZUMAB
     Indication: ADENOCARCINOMA OF COLON
     Route: 042
     Dates: start: 20190125, end: 20190719
  5. CONGESCOR [Concomitant]
     Active Substance: BISOPROLOL
  6. FLUOROURACIL. [Suspect]
     Active Substance: FLUOROURACIL
     Indication: ADENOCARCINOMA OF COLON
     Route: 042
     Dates: start: 20190125, end: 20190719
  7. OMEPRAZOLE. [Concomitant]
     Active Substance: OMEPRAZOLE
  8. IRINOTECAN HYDROCHLORIDE TRIHYDRATE [Suspect]
     Active Substance: IRINOTECAN HYDROCHLORIDE
     Indication: ADENOCARCINOMA OF COLON
     Route: 042
     Dates: start: 20190125, end: 20190719
  9. CARDIOASPIRIN [Concomitant]
     Active Substance: ASPIRIN
  10. FLUOROURACIL. [Suspect]
     Active Substance: FLUOROURACIL
     Route: 040
     Dates: start: 20190125, end: 20190719

REACTIONS (2)
  - Rectal haemorrhage [Recovering/Resolving]
  - Abdominal pain [Recovering/Resolving]

NARRATIVE: CASE EVENT DATE: 20190320
